FAERS Safety Report 10227844 (Version 1)
Quarter: 2014Q2

REPORT INFORMATION
  Report Type: Spontaneous
  Country: JP (occurrence: None)
  Receive Date: 20140606
  Receipt Date: 20140606
  Transmission Date: 20141212
  Serious: Yes (Life-Threatening, Hospitalization)
  Sender: FDA-Public Use
  Company Number: 2014/043

PATIENT
  Age: 27 Year
  Sex: Male
  Weight: 57 kg

DRUGS (3)
  1. LEVOFLOXACIN [Suspect]
     Indication: PULMONARY TUBERCULOSIS
     Dates: start: 201204, end: 201206
  2. ISONIAZID [Concomitant]
  3. RIFAMPIN (RIFAMPICIN) (RIFAMPICIN) [Concomitant]

REACTIONS (1)
  - Drug reaction with eosinophilia and systemic symptoms [None]
